FAERS Safety Report 23952974 (Version 2)
Quarter: 2024Q2

REPORT INFORMATION
  Report Type: Report from Study
  Country: US (occurrence: US)
  Receive Date: 20240608
  Receipt Date: 20240613
  Transmission Date: 20240716
  Serious: Yes (Hospitalization, Other)
  Sender: FDA-Public Use
  Company Number: US-ABBVIE-5789961

PATIENT
  Age: 79 Year
  Sex: Male
  Weight: 95.2 kg

DRUGS (6)
  1. VENCLEXTA [Suspect]
     Active Substance: VENETOCLAX
     Indication: Acute myeloid leukaemia
     Dosage: FORM STRENGTH: 100 MILLIGRAM
     Route: 048
     Dates: start: 202405, end: 20240606
  2. POLYSPORIN [Concomitant]
     Active Substance: BACITRACIN ZINC\POLYMYXIN B SULFATE
     Indication: Dry skin
  3. AQUAPHOR [Concomitant]
     Active Substance: PETROLATUM
     Indication: Dry skin
  4. LASIX [Concomitant]
     Active Substance: FUROSEMIDE
     Indication: Joint swelling
  5. POSACONAZOLE [Concomitant]
     Active Substance: POSACONAZOLE
     Indication: Prophylaxis
  6. AUGMENTIN [Concomitant]
     Active Substance: AMOXICILLIN\CLAVULANATE POTASSIUM
     Indication: Skin laceration

REACTIONS (9)
  - Skin infection [Recovering/Resolving]
  - Joint swelling [Recovering/Resolving]
  - Dry skin [Not Recovered/Not Resolved]
  - Skin weeping [Recovering/Resolving]
  - Skin fissures [Not Recovered/Not Resolved]
  - Skin laceration [Recovering/Resolving]
  - Wound infection [Unknown]
  - Peripheral swelling [Not Recovered/Not Resolved]
  - Skin haemorrhage [Unknown]

NARRATIVE: CASE EVENT DATE: 20240501
